FAERS Safety Report 7055429-2 (Version None)
Quarter: 2010Q4

REPORT INFORMATION
  Report Type: 
  Country: None (occurrence: None)
  Receive Date: 20101021
  Receipt Date: 20101014
  Transmission Date: 20110411
  Serious: Yes (Hospitalization, Other)
  Sender: FDA-Public Use
  Company Number: BR-ABBOTT-10P-020-0678647-00

PATIENT
  Sex: Female
  Weight: 41 kg

DRUGS (6)
  1. HUMIRA [Suspect]
     Indication: CROHN'S DISEASE
     Route: 058
     Dates: start: 20100501, end: 20100913
  2. PENTASA [Concomitant]
     Indication: CROHN'S DISEASE
     Route: 048
  3. PENTASA [Concomitant]
     Route: 054
  4. FOLIC ACID [Concomitant]
     Indication: ABDOMINAL PAIN UPPER
     Route: 048
  5. FOLIC ACID [Concomitant]
     Indication: PROPHYLAXIS
  6. OMENAX [Concomitant]
     Indication: ABDOMINAL PAIN
     Route: 048

REACTIONS (2)
  - ANORECTAL DISORDER [None]
  - DRUG DOSE OMISSION [None]
